FAERS Safety Report 25289986 (Version 2)
Quarter: 2025Q3

REPORT INFORMATION
  Report Type: Spontaneous
  Country: US (occurrence: US)
  Receive Date: 20250509
  Receipt Date: 20250810
  Transmission Date: 20251021
  Serious: No
  Sender: ALEXION PHARMACEUTICALS
  Company Number: US-AstraZeneca-CH-00865796AP

PATIENT
  Sex: Male

DRUGS (1)
  1. BREZTRI [Suspect]
     Active Substance: BUDESONIDE\FORMOTEROL\GLYCOPYRROLATE

REACTIONS (6)
  - Chronic obstructive pulmonary disease [Unknown]
  - Throat tightness [Unknown]
  - Incorrect dose administered [Unknown]
  - Product use issue [Unknown]
  - Dyspnoea [Unknown]
  - Wrong technique in device usage process [Unknown]
